FAERS Safety Report 5141058-4 (Version None)
Quarter: 2006Q4

REPORT INFORMATION
  Report Type: 
  Country: None (occurrence: None)
  Receive Date: 20061026
  Receipt Date: 20061013
  Transmission Date: 20070319
  Serious: Yes (Other)
  Sender: FDA-Public Use
  Company Number: 2006116316

PATIENT
  Age: 73 Year
  Sex: Female

DRUGS (1)
  1. SOLU-MEDROL [Suspect]
     Dosage: 500 MG, INTRAVENOUS
     Route: 042
     Dates: start: 20060623, end: 20060628

REACTIONS (5)
  - COLD SWEAT [None]
  - CONDITION AGGRAVATED [None]
  - DYSPNOEA [None]
  - PRE-EXISTING DISEASE [None]
  - WHEEZING [None]
